FAERS Safety Report 5205925-5 (Version None)
Quarter: 2007Q1

REPORT INFORMATION
  Report Type: 
  Country: None (occurrence: None)
  Receive Date: 20070108
  Receipt Date: 20061222
  Transmission Date: 20070707
  Serious: Yes (Hospitalization)
  Sender: FDA-Public Use
  Company Number: WAES 0612BRA00063

PATIENT
  Age: 68 Year
  Sex: Female

DRUGS (6)
  1. FOSAMAX [Suspect]
     Indication: OSTEOPOROSIS
     Dosage: 10 MG/DAILY PO
     Route: 048
     Dates: start: 20040423
  2. INJ PLACEBO (UNSPECIFIED) [Suspect]
     Indication: OSTEOPOROSIS
     Dosage: 10 MG/DAILY SC
     Route: 058
     Dates: start: 20040422
  3. CHLOROQUINE [Concomitant]
  4. METHOTREXATE [Concomitant]
  5. PREDNISONE TAB [Concomitant]
  6. RANITIDINE [Concomitant]

REACTIONS (3)
  - FEELING ABNORMAL [None]
  - HYPONATRAEMIA [None]
  - SOMNOLENCE [None]
